FAERS Safety Report 13926297 (Version 2)
Quarter: 2017Q3

REPORT INFORMATION
  Report Type: Spontaneous
  Country: DE (occurrence: DE)
  Receive Date: 20170831
  Receipt Date: 20170922
  Transmission Date: 20171127
  Serious: Yes (Death, Life-Threatening, Hospitalization, Other)
  Sender: FDA-Public Use
  Company Number: DE-B.I. PHARMACEUTICALS,INC./RIDGEFIELD-2017-BI-047831

PATIENT
  Age: 80 Year
  Sex: Male

DRUGS (9)
  1. PRADAXA [Suspect]
     Active Substance: DABIGATRAN ETEXILATE MESYLATE
     Indication: ATRIAL FIBRILLATION
     Route: 048
     Dates: end: 20170824
  2. RAMIPRIL. [Concomitant]
     Active Substance: RAMIPRIL
     Indication: PRODUCT USED FOR UNKNOWN INDICATION
     Route: 048
     Dates: end: 20170824
  3. L-THYROXIN [Concomitant]
     Active Substance: LEVOTHYROXINE SODIUM
     Indication: HYPOTHYROIDISM
     Route: 048
     Dates: end: 20170824
  4. JANUVIA [Concomitant]
     Active Substance: SITAGLIPTIN PHOSPHATE
     Indication: PRODUCT USED FOR UNKNOWN INDICATION
     Route: 048
     Dates: end: 20170824
  5. METFORMIN [Concomitant]
     Active Substance: METFORMIN HYDROCHLORIDE
     Indication: PRODUCT USED FOR UNKNOWN INDICATION
     Route: 048
     Dates: end: 20170824
  6. METOPROLOL. [Concomitant]
     Active Substance: METOPROLOL
     Indication: HYPERTENSION
     Route: 048
     Dates: end: 20170824
  7. NOVORAPID [Concomitant]
     Active Substance: INSULIN ASPART
     Indication: PRODUCT USED FOR UNKNOWN INDICATION
     Route: 065
     Dates: end: 20170824
  8. CLOPIDOGREL [Concomitant]
     Active Substance: CLOPIDOGREL BISULFATE
     Indication: PRODUCT USED FOR UNKNOWN INDICATION
     Route: 065
  9. LANTUS [Concomitant]
     Active Substance: INSULIN GLARGINE
     Indication: PRODUCT USED FOR UNKNOWN INDICATION
     Route: 065
     Dates: end: 20170824

REACTIONS (21)
  - Coagulopathy [Unknown]
  - Fatigue [Unknown]
  - Troponin T increased [Unknown]
  - Anaemia [Unknown]
  - Gastric haemorrhage [Unknown]
  - Renal function test abnormal [Fatal]
  - Melaena [Fatal]
  - Haematochezia [Fatal]
  - Acute kidney injury [Unknown]
  - Lactic acidosis [Unknown]
  - Thrombosis [Unknown]
  - Tachyarrhythmia [Unknown]
  - Cardiovascular disorder [Unknown]
  - Upper gastrointestinal haemorrhage [Fatal]
  - Polyuria [Unknown]
  - Cardiogenic shock [Fatal]
  - Polydipsia [Unknown]
  - Cardiovascular insufficiency [Unknown]
  - Diabetes mellitus [Unknown]
  - Myocardial ischaemia [Fatal]
  - Electrocardiogram QT prolonged [Unknown]

NARRATIVE: CASE EVENT DATE: 20170824
